FAERS Safety Report 4716351-7 (Version None)
Quarter: 2005Q3

REPORT INFORMATION
  Report Type: 
  Country: None (occurrence: None)
  Receive Date: 20050712
  Receipt Date: 20050215
  Transmission Date: 20060218
  Serious: Yes (Other)
  Sender: FDA-Public Use
  Company Number: PHEH2005US01127

PATIENT
  Age: 36 Year
  Sex: Male

DRUGS (4)
  1. GLEEVEC [Suspect]
     Indication: CHRONIC MYELOID LEUKAEMIA
     Dosage: ORAL
     Route: 048
     Dates: start: 20010101
  2. TAMIFLU [Suspect]
     Indication: INFLUENZA
     Dosage: 2 DOSES ONLY ORAL
     Route: 048
     Dates: start: 20050101, end: 20050101
  3. ALBUTEROL [Suspect]
     Indication: INFLUENZA
     Dates: start: 20050101, end: 20050101
  4. PREDNISONE [Concomitant]

REACTIONS (4)
  - CONTUSION [None]
  - INFLUENZA [None]
  - PETECHIAE [None]
  - THROMBOCYTOPENIA [None]
